FAERS Safety Report 25152900 (Version 1)
Quarter: 2025Q2

REPORT INFORMATION
  Report Type: Spontaneous
  Country: US (occurrence: US)
  Receive Date: 20250403
  Receipt Date: 20250403
  Transmission Date: 20250717
  Serious: Yes (Other)
  Sender: NOVO NORDISK
  Company Number: US-NOVOPROD-1398979

PATIENT
  Sex: Male

DRUGS (1)
  1. OZEMPIC [Suspect]
     Active Substance: SEMAGLUTIDE
     Indication: Type 2 diabetes mellitus
     Dates: start: 20250122, end: 20250219

REACTIONS (11)
  - Urinary retention [Not Recovered/Not Resolved]
  - Sudden onset of sleep [Recovering/Resolving]
  - Chills [Not Recovered/Not Resolved]
  - Insomnia [Recovered/Resolved]
  - Chest discomfort [Not Recovered/Not Resolved]
  - Impaired work ability [Unknown]
  - Decreased appetite [Not Recovered/Not Resolved]
  - Constipation [Not Recovered/Not Resolved]
  - Flatulence [Not Recovered/Not Resolved]
  - Eructation [Not Recovered/Not Resolved]
  - Vomiting [Not Recovered/Not Resolved]
